FAERS Safety Report 24045750 (Version 1)
Quarter: 2024Q3

REPORT INFORMATION
  Report Type: Spontaneous
  Country: CN (occurrence: CN)
  Receive Date: 20240703
  Receipt Date: 20240703
  Transmission Date: 20241016
  Serious: Yes (Hospitalization, Disabling, Other)
  Sender: NOVARTIS
  Company Number: CN-002147023-NVSC2024CN136260

PATIENT
  Age: 54 Year
  Sex: Male
  Weight: 85 kg

DRUGS (3)
  1. SACUBITRIL\VALSARTAN [Suspect]
     Active Substance: SACUBITRIL\VALSARTAN
     Indication: Hypertension
     Dosage: 100 MG, QD
     Route: 048
     Dates: start: 20210501, end: 20240626
  2. BISOPROLOL FUMARATE [Suspect]
     Active Substance: BISOPROLOL FUMARATE
     Indication: Hypertension
     Dosage: 5 MG, QD
     Route: 048
     Dates: start: 20210501, end: 20240626
  3. NIFEDIPINE [Suspect]
     Active Substance: NIFEDIPINE
     Indication: Hypertension
     Dosage: 30 MG, QD (CONTROLLED RELEASE TABLETS)
     Route: 048
     Dates: start: 20230501, end: 20240626

REACTIONS (13)
  - Sudden hearing loss [Recovering/Resolving]
  - Cerebral ischaemia [Unknown]
  - Pneumonitis [Unknown]
  - Arteriosclerosis coronary artery [Unknown]
  - Cerebral atrophy [Unknown]
  - Occult blood positive [Unknown]
  - Blood sodium decreased [Unknown]
  - Blood glucose increased [Unknown]
  - Glucose urine present [Unknown]
  - Specific gravity urine increased [Unknown]
  - Central nervous system lesion [Unknown]
  - Mastoid disorder [Unknown]
  - Pleural thickening [Unknown]

NARRATIVE: CASE EVENT DATE: 20240610
